FAERS Safety Report 7782179-7 (Version None)
Quarter: 2011Q3

REPORT INFORMATION
  Report Type: 
  Country: None (occurrence: None)
  Receive Date: 20110927
  Receipt Date: 20110915
  Transmission Date: 20111222
  Serious: Yes (Other)
  Sender: FDA-Public Use
  Company Number: JP-SANOFI-AVENTIS-2011SA057172

PATIENT
  Age: 71 Year
  Sex: Male
  Weight: 55 kg

DRUGS (1)
  1. PLAVIX [Suspect]
     Indication: ANGINA UNSTABLE
     Dosage: STRENGTH: 75 MG
     Route: 065

REACTIONS (1)
  - INTERSTITIAL LUNG DISEASE [None]
